FAERS Safety Report 25951548 (Version 1)
Quarter: 2025Q4

REPORT INFORMATION
  Report Type: Spontaneous
  Country: CN (occurrence: CN)
  Receive Date: 20251023
  Receipt Date: 20251023
  Transmission Date: 20260118
  Serious: Yes (Hospitalization)
  Sender: ACCORD
  Company Number: CN-Accord-509407

PATIENT
  Age: 59 Year
  Sex: Male

DRUGS (8)
  1. CAPECITABINE [Suspect]
     Active Substance: CAPECITABINE
     Indication: Pancreatic carcinoma metastatic
     Dosage: 1.5 G ADMINISTERED TWICE DAILY FOR 14 CONSECUTIVE DAYS
     Route: 048
     Dates: start: 2023
  2. SINTILIMAB [Suspect]
     Active Substance: SINTILIMAB
     Indication: Pancreatic carcinoma metastatic
     Dosage: 200 MG ON DAY 1 FIRST CYCLE
     Dates: start: 2023
  3. SINTILIMAB [Suspect]
     Active Substance: SINTILIMAB
     Indication: Metastases to peritoneum
     Dosage: 200 MG ON DAY 1 FIRST CYCLE
     Dates: start: 2023
  4. SINTILIMAB [Suspect]
     Active Substance: SINTILIMAB
     Indication: Metastases to abdominal cavity
     Dosage: 200 MG ON DAY 1 FIRST CYCLE
     Dates: start: 2023
  5. CAPECITABINE [Suspect]
     Active Substance: CAPECITABINE
     Indication: Metastases to abdominal wall
     Dosage: 1.5 G ADMINISTERED TWICE DAILY FOR 14 CONSECUTIVE DAYS
     Route: 048
     Dates: start: 2023
  6. SINTILIMAB [Suspect]
     Active Substance: SINTILIMAB
     Indication: Metastases to abdominal wall
     Dosage: 200 MG ON DAY 1 FIRST CYCLE
     Dates: start: 2023
  7. CAPECITABINE [Suspect]
     Active Substance: CAPECITABINE
     Indication: Metastases to peritoneum
     Dosage: 1.5 G ADMINISTERED TWICE DAILY FOR 14 CONSECUTIVE DAYS
     Route: 048
     Dates: start: 2023
  8. CAPECITABINE [Suspect]
     Active Substance: CAPECITABINE
     Indication: Metastases to abdominal cavity
     Dosage: 1.5 G ADMINISTERED TWICE DAILY FOR 14 CONSECUTIVE DAYS
     Route: 048
     Dates: start: 2023

REACTIONS (2)
  - Neutropenia [Unknown]
  - Small intestinal obstruction [Unknown]
